FAERS Safety Report 5025198-6 (Version None)
Quarter: 2006Q2

REPORT INFORMATION
  Report Type: 
  Country: None (occurrence: None)
  Receive Date: 20060613
  Receipt Date: 20060602
  Transmission Date: 20061013
  Serious: Yes (Hospitalization)
  Sender: FDA-Public Use
  Company Number: FR-GLAXOSMITHKLINE-B0426285A

PATIENT
  Age: 46 Year
  Sex: Male
  Weight: 80 kg

DRUGS (5)
  1. DEROXAT [Suspect]
     Indication: DEPRESSION
     Dosage: 20MG PER DAY
     Route: 048
     Dates: start: 20030101
  2. SULFASALAZINE [Concomitant]
     Route: 065
     Dates: end: 20060314
  3. EUPANTOL [Concomitant]
     Route: 065
  4. ANTALGIC [Concomitant]
     Route: 065
  5. CLINICAL STUDY MEDICATION [Concomitant]
     Indication: ANKYLOSING SPONDYLITIS
     Dosage: 500MG PER DAY
     Route: 048
     Dates: start: 20060410, end: 20060509

REACTIONS (11)
  - ABDOMINAL PAIN [None]
  - AGRANULOCYTOSIS [None]
  - ASTHENIA [None]
  - DIARRHOEA [None]
  - ERYTHEMA [None]
  - ERYTHROMELALGIA [None]
  - HYPERSENSITIVITY [None]
  - PRURITUS [None]
  - PYREXIA [None]
  - RASH [None]
  - WEIGHT DECREASED [None]
